FAERS Safety Report 5299396-0 (Version None)
Quarter: 2007Q2

REPORT INFORMATION
  Report Type: 
  Country: None (occurrence: None)
  Receive Date: 20070417
  Receipt Date: 20070404
  Transmission Date: 20071010
  Serious: Yes (Hospitalization, Other)
  Sender: FDA-Public Use
  Company Number: PHEH2007US03189

PATIENT
  Age: 55 Year
  Sex: Female

DRUGS (5)
  1. FEMARA [Suspect]
     Indication: BREAST CANCER STAGE IV
     Dosage: 2.5 MG, UNK
     Dates: start: 20050301
  2. ADRIAMYCIN + CYCLOPHOSPHAMIDE [Concomitant]
     Indication: BREAST CANCER
     Dates: start: 20060419
  3. ZOFRAN [Concomitant]
     Dates: start: 20060416
  4. RADIATION [Concomitant]
     Indication: BREAST CANCER
     Dosage: 24 TREATMENTS
     Dates: start: 20050429, end: 20050606
  5. RADIATION [Concomitant]
     Dates: start: 20060517, end: 20060628

REACTIONS (14)
  - ADVERSE DRUG REACTION [None]
  - CALCIFICATION METASTATIC [None]
  - DRUG INEFFECTIVE [None]
  - FIBROADENOMA OF BREAST [None]
  - FIBROCYSTIC BREAST DISEASE [None]
  - LYMPHADENECTOMY [None]
  - MALIGNANT BREAST LUMP REMOVAL [None]
  - MALIGNANT HYDATIDIFORM MOLE [None]
  - MALIGNANT NEOPLASM PROGRESSION [None]
  - METASTASES TO LIVER [None]
  - METASTASES TO LYMPH NODES [None]
  - METASTATIC NEOPLASM [None]
  - MOLE EXCISION [None]
  - PLEURAL NEOPLASM [None]
